FAERS Safety Report 5224689-2 (Version None)
Quarter: 2007Q1

REPORT INFORMATION
  Report Type: 
  Country: None (occurrence: None)
  Receive Date: 20070129
  Receipt Date: 20070129
  Transmission Date: 20070707
  Serious: No
  Sender: FDA-Public Use
  Company Number: None

PATIENT
  Sex: Female
  Weight: 19.64 kg

DRUGS (7)
  1. DAUNORUBICIN HCL [Suspect]
     Dosage: 19.3 MG
  2. DEXAMETHASONE [Suspect]
     Dosage: 7.8 MG
  3. METHOTREXATE [Suspect]
     Dosage: 12 MG
  4. PEG-L-ASPARAGINASE (K-H) [Suspect]
     Dosage: 1925 UNIT
  5. VINCRISTINE SULFATE [Suspect]
     Dosage: 1.16 MG
  6. CYTARABINE [Suspect]
     Dosage: 70 MG
  7. BACTRIM [Concomitant]

REACTIONS (13)
  - ABDOMINAL DISTENSION [None]
  - CARDIO-RESPIRATORY ARREST [None]
  - CONSTIPATION [None]
  - GALLBLADDER DISORDER [None]
  - GALLBLADDER OEDEMA [None]
  - HYPOTENSION [None]
  - NEUTROPENIA [None]
  - PNEUMATOSIS [None]
  - SEPSIS [None]
  - SEPTIC EMBOLUS [None]
  - SEPTIC SHOCK [None]
  - SPLENIC INFARCTION [None]
  - TRACHEAL HAEMORRHAGE [None]
